FAERS Safety Report 4403509-X (Version None)
Quarter: 2004Q3

REPORT INFORMATION
  Report Type: 
  Country: None (occurrence: None)
  Receive Date: 20040719
  Receipt Date: 20040709
  Transmission Date: 20050211
  Serious: Yes (Other)
  Sender: FDA-Public Use
  Company Number: S04-USA-03709-01

PATIENT
  Age: 42 Year
  Sex: Male

DRUGS (4)
  1. NAMENDA [Suspect]
     Indication: TRAUMATIC BRAIN INJURY
     Dosage: 20 MG QD PO
     Route: 048
  2. NAMENDA [Suspect]
     Indication: TRAUMATIC BRAIN INJURY
     Dosage: 5 MG QD PO
     Route: 048
  3. NAMENDA [Suspect]
     Indication: TRAUMATIC BRAIN INJURY
     Dosage: 10 MG QD PO
     Route: 048
  4. NAMENDA [Suspect]
     Indication: TRAUMATIC BRAIN INJURY
     Dosage: 15 MG QD PO
     Route: 048

REACTIONS (1)
  - TOURETTE'S DISORDER [None]
